FAERS Safety Report 6891488-5 (Version None)
Quarter: 2010Q3

REPORT INFORMATION
  Report Type: 
  Country: None (occurrence: None)
  Receive Date: 20100731
  Receipt Date: 20070716
  Transmission Date: 20110219
  Serious: Yes (Other)
  Sender: FDA-Public Use
  Company Number: US-PFIZER INC-2007057056

PATIENT
  Sex: Female
  Weight: 58.636 kg

DRUGS (2)
  1. DEPO-MEDROL [Suspect]
     Indication: EAR INFECTION
     Dates: start: 20070123, end: 20070123
  2. YASMIN [Concomitant]
     Indication: CONTRACEPTION

REACTIONS (1)
  - INJECTION SITE REACTION [None]
